FAERS Safety Report 12980585 (Version 1)
Quarter: 2016Q4

REPORT INFORMATION
  Report Type: Spontaneous
  Country: IT (occurrence: IT)
  Receive Date: 20161128
  Receipt Date: 20161128
  Transmission Date: 20170207
  Serious: Yes (Other)
  Sender: FDA-Public Use
  Company Number: IT-EMD SERONO-8095528

PATIENT
  Age: 44 Year
  Sex: Female

DRUGS (2)
  1. NACREZ [Concomitant]
     Indication: PRODUCT USED FOR UNKNOWN INDICATION
  2. REBIF [Suspect]
     Active Substance: INTERFERON BETA-1A
     Indication: MULTIPLE SCLEROSIS
     Route: 058
     Dates: start: 20090701, end: 20160626

REACTIONS (2)
  - Injection site cellulitis [Not Recovered/Not Resolved]
  - Application site necrosis [Not Recovered/Not Resolved]

NARRATIVE: CASE EVENT DATE: 20160623
